FAERS Safety Report 21586708 (Version 1)
Quarter: 2022Q4

REPORT INFORMATION
  Report Type: Spontaneous
  Country: CA (occurrence: CA)
  Receive Date: 20221113
  Receipt Date: 20221113
  Transmission Date: 20230113
  Serious: Yes (Other)
  Sender: FDA-Public Use
  Company Number: CA-JNJFOC-20221122237

PATIENT
  Age: 44 Year
  Sex: Male
  Weight: 97 kg

DRUGS (4)
  1. REMICADE [Suspect]
     Active Substance: INFLIXIMAB
     Indication: Colitis ulcerative
     Route: 041
  2. ACETAMINOPHEN [Concomitant]
     Active Substance: ACETAMINOPHEN
     Indication: Premedication
     Route: 048
  3. BENADRYL [Concomitant]
     Active Substance: DIPHENHYDRAMINE HYDROCHLORIDE
     Indication: Premedication
  4. HYDROCORTISONE [Concomitant]
     Active Substance: HYDROCORTISONE
     Indication: Premedication

REACTIONS (8)
  - Sleep apnoea syndrome [Recovered/Resolved]
  - Dysphagia [Recovered/Resolved]
  - Hypoxia [Recovered/Resolved]
  - Cough [Recovered/Resolved]
  - Chest discomfort [Recovered/Resolved]
  - Dyspnoea [Recovered/Resolved]
  - Infusion related reaction [Recovered/Resolved]
  - Pruritus [Recovered/Resolved]
